FAERS Safety Report 6428069-3 (Version None)
Quarter: 2009Q4

REPORT INFORMATION
  Report Type: 
  Country: None (occurrence: None)
  Receive Date: 20091105
  Receipt Date: 20091026
  Transmission Date: 20100525
  Serious: Yes (Hospitalization, Other)
  Sender: FDA-Public Use
  Company Number: PHHO2009GB12258

PATIENT
  Sex: Male

DRUGS (3)
  1. NEORAL [Suspect]
     Indication: HEART TRANSPLANT
     Dosage: 100 MG BD
     Dates: start: 20090101
  2. NO TREATMENT RECEIVED NOMED [Suspect]
     Indication: HEART TRANSPLANT
     Dosage: UNK
     Route: 048
     Dates: start: 20090101
  3. MYCOPHENOLATE MOFETIL [Suspect]
     Indication: HEART TRANSPLANT
     Dosage: 1500 MG, BID
     Dates: start: 20090101

REACTIONS (3)
  - HEAD DISCOMFORT [None]
  - MALAISE [None]
  - PALPITATIONS [None]
